FAERS Safety Report 4738109-5 (Version None)
Quarter: 2005Q3

REPORT INFORMATION
  Report Type: 
  Country: None (occurrence: None)
  Receive Date: 20050805
  Receipt Date: 20050805
  Transmission Date: 20060218
  Serious: No
  Sender: FDA-Public Use
  Company Number: None

PATIENT
  Age: 78 Year
  Sex: Female

DRUGS (4)
  1. VERSED [Suspect]
     Indication: BRONCHOSCOPY
     Dosage: VERSED 1MG IV
     Route: 042
     Dates: start: 20040331
  2. FENTANYL [Suspect]
     Dosage: FENTANYL 25 MCG IV
     Route: 042
     Dates: start: 20040331
  3. DEMEROL [Concomitant]
  4. VISTARIL [Concomitant]

REACTIONS (2)
  - PROCEDURAL COMPLICATION [None]
  - RESPIRATORY ARREST [None]
